FAERS Safety Report 10560950 (Version 3)
Quarter: 2014Q4

REPORT INFORMATION
  Report Type: Spontaneous
  Country: JP (occurrence: JP)
  Receive Date: 20141103
  Receipt Date: 20141125
  Transmission Date: 20150529
  Serious: Yes (Hospitalization)
  Sender: FDA-Public Use
  Company Number: JP-JNJFOC-20141017881

PATIENT
  Age: 68 Year
  Sex: Female
  Weight: 38 kg

DRUGS (12)
  1. LIPITOR [Concomitant]
     Active Substance: ATORVASTATIN CALCIUM
     Indication: DYSLIPIDAEMIA
     Route: 048
     Dates: start: 20130613
  2. NEXIUM [Concomitant]
     Active Substance: ESOMEPRAZOLE MAGNESIUM
     Indication: PROPHYLAXIS AGAINST GASTROINTESTINAL ULCER
     Route: 048
     Dates: start: 20130613
  3. CARVEDILOL. [Concomitant]
     Active Substance: CARVEDILOL
     Indication: HYPERTENSION
     Route: 048
     Dates: start: 20130613
  4. SPIRONOLACTONE. [Concomitant]
     Active Substance: SPIRONOLACTONE
     Indication: CARDIAC FAILURE ACUTE
     Route: 048
     Dates: start: 20130613
  5. BAYASPIRIN [Suspect]
     Active Substance: ASPIRIN
     Indication: CORONARY ANGIOPLASTY
     Route: 048
     Dates: start: 20130925, end: 20140603
  6. DIART [Concomitant]
     Active Substance: AZOSEMIDE
     Indication: CARDIAC FAILURE ACUTE
     Route: 048
     Dates: start: 20130613
  7. PLAVIX [Suspect]
     Active Substance: CLOPIDOGREL BISULFATE
     Indication: CORONARY ANGIOPLASTY
     Route: 048
     Dates: start: 20130925, end: 20140603
  8. FEBUXOSTAT. [Concomitant]
     Active Substance: FEBUXOSTAT
     Indication: HYPERURICAEMIA
     Route: 048
     Dates: start: 20130613
  9. XARELTO [Suspect]
     Active Substance: RIVAROXABAN
     Indication: PRODUCT USED FOR UNKNOWN INDICATION
     Route: 048
  10. ASPIRIN. [Concomitant]
     Active Substance: ASPIRIN
     Route: 048
  11. CLOPIDOGREL SULFATE [Concomitant]
     Active Substance: CLOPIDOGREL BISULFATE
     Route: 048
  12. PLAVIX [Suspect]
     Active Substance: CLOPIDOGREL BISULFATE
     Indication: CORONARY ANGIOPLASTY
     Route: 048
     Dates: start: 20140607

REACTIONS (1)
  - Vascular pseudoaneurysm [Recovered/Resolved]

NARRATIVE: CASE EVENT DATE: 201405
